FAERS Safety Report 7442469-4 (Version None)
Quarter: 2011Q2

REPORT INFORMATION
  Report Type: 
  Country: None (occurrence: None)
  Receive Date: 20110428
  Receipt Date: 20110425
  Transmission Date: 20111010
  Serious: No
  Sender: FDA-Public Use
  Company Number: US-PFIZER INC-2011089023

PATIENT
  Sex: Female

DRUGS (2)
  1. PREMARIN [Suspect]
     Dosage: 0.45 MG, DAILY
     Route: 048
  2. ZETIA [Concomitant]
     Dosage: UNK

REACTIONS (1)
  - PRURITUS [None]
